FAERS Safety Report 7376820-0 (Version None)
Quarter: 2011Q1

REPORT INFORMATION
  Report Type: 
  Country: None (occurrence: None)
  Receive Date: 20110325
  Receipt Date: 20110323
  Transmission Date: 20110831
  Serious: Yes (Other)
  Sender: FDA-Public Use
  Company Number: GR-MERCK-1006GRC00001

PATIENT
  Age: 3 Year
  Sex: Female

DRUGS (2)
  1. SINGULAIR [Suspect]
     Indication: BRONCHITIS
     Route: 048
     Dates: start: 20100215, end: 20100306
  2. SINGULAIR [Suspect]
     Route: 048
     Dates: start: 20100101, end: 20100101

REACTIONS (3)
  - NIGHTMARE [None]
  - INSOMNIA [None]
  - BLEPHAROSPASM [None]
